FAERS Safety Report 8346773-7 (Version None)
Quarter: 2012Q2

REPORT INFORMATION
  Report Type: 
  Country: None (occurrence: None)
  Receive Date: 20120508
  Receipt Date: 20120508
  Transmission Date: 20120825
  Serious: Yes (Hospitalization)
  Sender: FDA-Public Use
  Company Number: None

PATIENT
  Age: 89 Year
  Sex: Male
  Weight: 25.76 kg

DRUGS (1)
  1. PRADAXA [Suspect]

REACTIONS (5)
  - VOMITING [None]
  - MALAISE [None]
  - MELAENA [None]
  - HYPOTENSION [None]
  - HAEMOGLOBIN DECREASED [None]
